FAERS Safety Report 4541158-3 (Version None)
Quarter: 2004Q4

REPORT INFORMATION
  Report Type: 
  Country: None (occurrence: None)
  Receive Date: 20041227
  Receipt Date: 20041221
  Transmission Date: 20050328
  Serious: Yes (Death, Hospitalization)
  Sender: FDA-Public Use
  Company Number: FRWYE296621DEC04

PATIENT
  Age: 75 Year
  Sex: Female

DRUGS (3)
  1. BISOPROLOL FUMARATE [Suspect]
     Dosage: 5 MG 1X PER 1 DAY, ORAL
     Route: 048
     Dates: start: 20041115, end: 20041116
  2. TILDIEM (DILTIAZEM HYDROCHLORIDE, , 0) [Suspect]
     Dosage: 120 MG 1X PER 1 DAY
     Route: 048
     Dates: start: 20041112, end: 20041116
  3. RISORDAN (ISOSORBIDE DINITRATE) [Concomitant]

REACTIONS (4)
  - ACUTE PULMONARY OEDEMA [None]
  - ATRIOVENTRICULAR BLOCK COMPLETE [None]
  - CARDIAC ARREST [None]
  - VENTRICULAR FIBRILLATION [None]
